FAERS Safety Report 5654957-1 (Version None)
Quarter: 2008Q1

REPORT INFORMATION
  Report Type: 
  Country: None (occurrence: None)
  Receive Date: 20080307
  Receipt Date: 20080227
  Transmission Date: 20080703
  Serious: Yes (Hospitalization)
  Sender: FDA-Public Use
  Company Number: SE-BAYER-200814006GPV

PATIENT
  Age: 60 Year
  Sex: Male

DRUGS (9)
  1. DTIC [Suspect]
     Indication: HODGKIN'S DISEASE
     Route: 065
     Dates: start: 20070509
  2. BLEOMYCIN [Suspect]
     Indication: HODGKIN'S DISEASE
     Route: 042
     Dates: start: 20070509
  3. VELBE [Suspect]
     Indication: HODGKIN'S DISEASE
     Route: 065
     Dates: start: 20070509
  4. ADRIAMYCIN PFS [Suspect]
     Indication: HODGKIN'S DISEASE
     Route: 042
  5. SELOCEN ZOC / METOPROLOL [Concomitant]
     Indication: DRUG USE FOR UNKNOWN INDICATION
     Route: 048
  6. NORMORIX MITE / AMILORID HYDROKLORTIAZID [Concomitant]
     Indication: DRUG USE FOR UNKNOWN INDICATION
     Route: 048
  7. IMDUR / ISOSORBIDMONONITRAT [Concomitant]
     Indication: DRUG USE FOR UNKNOWN INDICATION
     Route: 048
  8. ZEFIX / LAMIVUDIN [Concomitant]
     Indication: DRUG USE FOR UNKNOWN INDICATION
     Route: 048
  9. NOVOMIX / INSULIN ASPART PROTAMIN [Concomitant]
     Indication: DRUG USE FOR UNKNOWN INDICATION
     Route: 058

REACTIONS (4)
  - FEBRILE NEUTROPENIA [None]
  - LUNG INFILTRATION [None]
  - PNEUMOCYSTIS JIROVECI INFECTION [None]
  - PULMONARY FIBROSIS [None]
